FAERS Safety Report 16867931 (Version 1)
Quarter: 2019Q3

REPORT INFORMATION
  Report Type: Spontaneous
  Country: ES (occurrence: ES)
  Receive Date: 20190930
  Receipt Date: 20190930
  Transmission Date: 20191005
  Serious: Yes (Other)
  Sender: FDA-Public Use
  Company Number: ES-ROCHE-2412643

PATIENT
  Age: 38 Year
  Sex: Male

DRUGS (18)
  1. STAVUDINE. [Suspect]
     Active Substance: STAVUDINE
     Indication: ANTIRETROVIRAL THERAPY
     Dosage: UNK
     Route: 065
     Dates: start: 1997, end: 2001
  2. STAVUDINE. [Suspect]
     Active Substance: STAVUDINE
     Dosage: UNK
     Route: 065
     Dates: start: 2002, end: 2002
  3. LOPINAVIR/RITONAVIR [Suspect]
     Active Substance: LOPINAVIR\RITONAVIR
     Dosage: 400/100 MG TWICE DAILY
     Route: 065
     Dates: start: 2002, end: 2010
  4. LOPINAVIR/RITONAVIR [Suspect]
     Active Substance: LOPINAVIR\RITONAVIR
     Dosage: 300/75 MG BID (DOSE ADJUSTMENT)
     Route: 065
     Dates: start: 201009, end: 201110
  5. LAMIVUDINE. [Suspect]
     Active Substance: LAMIVUDINE
     Indication: ANTIRETROVIRAL THERAPY
     Dosage: UNK
     Route: 065
     Dates: start: 1997, end: 2001
  6. NEVIRAPINE. [Suspect]
     Active Substance: NEVIRAPINE
     Indication: ANTIRETROVIRAL THERAPY
     Dosage: UNK
     Route: 065
     Dates: start: 2001, end: 2002
  7. LOPINAVIR/RITONAVIR [Suspect]
     Active Substance: LOPINAVIR\RITONAVIR
     Dosage: 300/75 MG BID (MONOTHERAPY)
     Route: 065
     Dates: start: 201110, end: 2013
  8. NELFINAVIR [Suspect]
     Active Substance: NELFINAVIR
     Indication: ANTIRETROVIRAL THERAPY
     Dosage: UNK
     Route: 065
     Dates: start: 1998, end: 2002
  9. LOPINAVIR/RITONAVIR [Suspect]
     Active Substance: LOPINAVIR\RITONAVIR
     Dosage: 200/50 MG BID
     Route: 065
     Dates: start: 2013, end: 2013
  10. DIDANOSINE. [Suspect]
     Active Substance: DIDANOSINE
     Dosage: UNK
     Route: 065
     Dates: start: 1994, end: 1997
  11. INDINAVIR [Suspect]
     Active Substance: INDINAVIR
     Indication: ANTIRETROVIRAL THERAPY
     Dosage: UNK
     Route: 065
     Dates: start: 1997, end: 1998
  12. LOPINAVIR/RITONAVIR [Suspect]
     Active Substance: LOPINAVIR\RITONAVIR
     Indication: ANTIRETROVIRAL THERAPY
     Dosage: 300/75 MG BID
     Route: 065
     Dates: start: 2013, end: 201510
  13. ABACAVIR. [Suspect]
     Active Substance: ABACAVIR
     Indication: ANTIRETROVIRAL THERAPY
     Dosage: UNK
     Route: 065
     Dates: start: 2008, end: 2011
  14. SAQUINAVIR [Suspect]
     Active Substance: SAQUINAVIR
     Indication: ANTIRETROVIRAL THERAPY
     Dosage: UNK
     Route: 065
     Dates: start: 1996, end: 1997
  15. DIDANOSINE. [Suspect]
     Active Substance: DIDANOSINE
     Indication: ANTIRETROVIRAL THERAPY
     Dosage: UNK
     Route: 065
     Dates: start: 2001, end: 2008
  16. EFAVIRENZ. [Suspect]
     Active Substance: EFAVIRENZ
     Indication: ANTIRETROVIRAL THERAPY
     Route: 065
     Dates: start: 2001, end: 2001
  17. ZIDOVUDINE. [Suspect]
     Active Substance: ZIDOVUDINE
     Indication: ANTIRETROVIRAL THERAPY
     Dosage: UNK
     Route: 065
     Dates: start: 1994, end: 1997
  18. TENOFOVIR DISOPROXIL FUMARATE. [Suspect]
     Active Substance: TENOFOVIR DISOPROXIL FUMARATE
     Indication: ANTIRETROVIRAL THERAPY
     Dosage: UNK
     Route: 065
     Dates: start: 2002, end: 2011

REACTIONS (12)
  - Virologic failure [Unknown]
  - Pathological fracture [Unknown]
  - Proteinuria [Recovered/Resolved]
  - Renal impairment [Recovered/Resolved]
  - Musculoskeletal pain [Recovered/Resolved]
  - Chronic kidney disease [Recovered/Resolved]
  - Bone metabolism disorder [Recovered/Resolved]
  - Lipodystrophy acquired [Unknown]
  - Hypophosphataemia [Recovered/Resolved]
  - Renal glycosuria [Recovered/Resolved]
  - Dyslipidaemia [Unknown]
  - Fanconi syndrome [Recovered/Resolved]

NARRATIVE: CASE EVENT DATE: 1996
